FAERS Safety Report 13493430 (Version 3)
Quarter: 2020Q2

REPORT INFORMATION
  Report Type: Report from Study
  Country: US (occurrence: US)
  Receive Date: 20170427
  Receipt Date: 20200421
  Transmission Date: 20200713
  Serious: Yes (Hospitalization)
  Sender: FDA-Public Use
  Company Number: US-ACTELION-A-US2016-146659

PATIENT
  Age: 57 Year
  Sex: Female

DRUGS (17)
  1. OPSUMIT [Suspect]
     Active Substance: MACITENTAN
     Indication: PULMONARY ARTERIAL HYPERTENSION
     Dosage: 10 MG, UNK
     Route: 048
     Dates: start: 20160921
  2. MINOXIDIL. [Concomitant]
     Active Substance: MINOXIDIL
     Dosage: 2.5 MG, UNK
     Dates: start: 20161019
  3. METOPROLOL. [Concomitant]
     Active Substance: METOPROLOL
     Dosage: 100 MG, UNK
     Dates: start: 20161019
  4. FISH OIL [Concomitant]
     Active Substance: FISH OIL
     Dosage: 1000 MG, UNK
     Dates: start: 20161019
  5. LIPITOR [Concomitant]
     Active Substance: ATORVASTATIN CALCIUM
     Dosage: 40 MG, UNK
     Dates: start: 20161019
  6. ZYRTEC [Concomitant]
     Active Substance: CETIRIZINE HYDROCHLORIDE
     Dosage: 10 MG, UNK
     Dates: start: 20161019
  7. LISINOPRIL. [Concomitant]
     Active Substance: LISINOPRIL
  8. FUROSEMIDE. [Concomitant]
     Active Substance: FUROSEMIDE
     Dosage: 40 MG, UNK
     Dates: start: 20161019
  9. SPIRONOLACTONE. [Concomitant]
     Active Substance: SPIRONOLACTONE
     Dosage: 25 MG, UNK
     Dates: start: 20161019
  10. NASACORT [Concomitant]
     Active Substance: TRIAMCINOLONE ACETONIDE
     Dosage: 55 UNK, UNK
     Dates: start: 20170421
  11. ALBUTEROL. [Concomitant]
     Active Substance: ALBUTEROL
     Dosage: 4 MG, UNK
     Dates: start: 20161019
  12. MAGNESIUM [Concomitant]
     Active Substance: MAGNESIUM
  13. ALLEGRA D-12 HOUR [Concomitant]
     Active Substance: FEXOFENADINE HYDROCHLORIDE\PSEUDOEPHEDRINE HYDROCHLORIDE
     Dosage: UNK
     Dates: start: 20170421
  14. ASPIRIN. [Concomitant]
     Active Substance: ASPIRIN
     Dosage: 81 MG, UNK
     Dates: start: 20161019
  15. PROAIR HFA [Concomitant]
     Active Substance: ALBUTEROL SULFATE
     Dosage: UNK
     Dates: start: 20161019
  16. QVAR [Concomitant]
     Active Substance: BECLOMETHASONE DIPROPIONATE
     Dosage: 80 UNK, UNK
     Dates: start: 20161019
  17. MUCINEX [Concomitant]
     Active Substance: GUAIFENESIN
     Dosage: 600 UNK, UNK
     Dates: start: 20161019

REACTIONS (9)
  - Product dose omission [Not Recovered/Not Resolved]
  - Cardiac failure congestive [Recovered/Resolved]
  - Nasal congestion [Not Recovered/Not Resolved]
  - Pulmonary oedema [Not Recovered/Not Resolved]
  - Bronchitis [Recovered/Resolved]
  - Dyspnoea [Recovered/Resolved]
  - Cough [Recovered/Resolved]
  - Fluid retention [Unknown]
  - Memory impairment [Not Recovered/Not Resolved]

NARRATIVE: CASE EVENT DATE: 20161120
